FAERS Safety Report 16766791 (Version 1)
Quarter: 2019Q3

REPORT INFORMATION
  Report Type: Spontaneous
  Country: US (occurrence: US)
  Receive Date: 20190903
  Receipt Date: 20190903
  Transmission Date: 20191005
  Serious: No
  Sender: FDA-Public Use
  Company Number: US-PFIZER INC-2019372704

PATIENT
  Age: 70 Year
  Sex: Female
  Weight: 56.7 kg

DRUGS (2)
  1. METFORMIN [Concomitant]
     Active Substance: METFORMIN HYDROCHLORIDE
     Indication: DIABETES MELLITUS
     Dosage: 1000 MG, DAILY [500 MG IN MORNING AND 500 IN EVENING]
  2. XALATAN [Suspect]
     Active Substance: LATANOPROST
     Indication: GLAUCOMA
     Dosage: UNK

REACTIONS (3)
  - Visual impairment [Unknown]
  - Vision blurred [Unknown]
  - Glycosylated haemoglobin abnormal [Unknown]
